FAERS Safety Report 6600537-0 (Version None)
Quarter: 2010Q1

REPORT INFORMATION
  Report Type: 
  Country: None (occurrence: None)
  Receive Date: 20100224
  Receipt Date: 20100219
  Transmission Date: 20100710
  Serious: Yes (Hospitalization)
  Sender: FDA-Public Use
  Company Number: FR-MERCK-1002FRA00053

PATIENT
  Age: 56 Year
  Sex: Male

DRUGS (11)
  1. EMEND [Suspect]
     Indication: PREMEDICATION
     Route: 048
     Dates: start: 20090818, end: 20090818
  2. EMEND [Suspect]
     Route: 048
     Dates: start: 20090819, end: 20090819
  3. FLUOROURACIL [Suspect]
     Indication: SQUAMOUS CELL CARCINOMA
     Route: 041
     Dates: start: 20090817, end: 20090817
  4. CISPLATIN [Suspect]
     Indication: TONGUE NEOPLASM MALIGNANT STAGE UNSPECIFIED
     Route: 041
     Dates: start: 20090817, end: 20090817
  5. ERBITUX [Suspect]
     Indication: TONGUE NEOPLASM MALIGNANT STAGE UNSPECIFIED
     Route: 041
     Dates: start: 20090817, end: 20090831
  6. METHYLPREDNISOLONE [Suspect]
     Indication: PREMEDICATION
     Route: 042
     Dates: start: 20090817, end: 20090831
  7. ZOPHREN [Suspect]
     Indication: PREMEDICATION
     Route: 042
     Dates: start: 20090817, end: 20090817
  8. POLARAMINE [Suspect]
     Indication: PREMEDICATION
     Route: 041
     Dates: start: 20090817, end: 20090831
  9. ERBITUX [Suspect]
     Indication: SQUAMOUS CELL CARCINOMA
     Route: 041
     Dates: start: 20090817, end: 20090831
  10. CISPLATIN [Suspect]
     Indication: SQUAMOUS CELL CARCINOMA
     Route: 041
     Dates: start: 20090817, end: 20090817
  11. FLUOROURACIL [Suspect]
     Indication: TONGUE NEOPLASM MALIGNANT STAGE UNSPECIFIED
     Route: 041
     Dates: start: 20090817, end: 20090817

REACTIONS (3)
  - AMAUROSIS [None]
  - GLARE [None]
  - MALAISE [None]
